FAERS Safety Report 18610519 (Version 1)
Quarter: 2020Q4

REPORT INFORMATION
  Report Type: Spontaneous
  Country: US (occurrence: US)
  Receive Date: 20201211
  Receipt Date: 20201211
  Transmission Date: 20210114
  Serious: Yes (Disabling)
  Sender: FDA-Public Use
  Company Number: None

PATIENT
  Age: 66 Year
  Sex: Male
  Weight: 79 kg

DRUGS (1)
  1. ENFORTUMAB VEDOTIN-EJFV [Suspect]
     Active Substance: ENFORTUMAB VEDOTIN-EJFV
     Indication: BLADDER CANCER
     Dosage: ?          OTHER FREQUENCY:DAYS 1,8,15 Q 28 D;?
     Route: 041
     Dates: start: 20200603, end: 20201209

REACTIONS (2)
  - Neuropathy peripheral [None]
  - Fall [None]

NARRATIVE: CASE EVENT DATE: 20201209
